FAERS Safety Report 6519612-4 (Version None)
Quarter: 2009Q4

REPORT INFORMATION
  Report Type: 
  Country: None (occurrence: None)
  Receive Date: 20091228
  Receipt Date: 20091214
  Transmission Date: 20100525
  Serious: Yes (Death, Hospitalization)
  Sender: FDA-Public Use
  Company Number: FR-BAXTER-2009BH018471

PATIENT
  Age: 71 Year
  Sex: Male
  Weight: 85 kg

DRUGS (13)
  1. SUPRANE [Suspect]
     Indication: GENERAL ANAESTHESIA
     Route: 055
     Dates: start: 20090406, end: 20090406
  2. NITROUS OXIDE [Concomitant]
     Indication: GENERAL ANAESTHESIA
     Route: 055
     Dates: start: 20090406, end: 20090406
  3. OXYGEN [Concomitant]
     Indication: GENERAL ANAESTHESIA
     Route: 055
     Dates: start: 20090406, end: 20090406
  4. SUFENTANIL CITRATE [Concomitant]
     Indication: ANAESTHESIA
     Route: 042
     Dates: start: 20090406, end: 20090406
  5. DIPRIVAN [Concomitant]
     Indication: ANAESTHESIA
     Route: 042
     Dates: start: 20090406, end: 20090406
  6. HYPNOVEL [Concomitant]
     Indication: ANAESTHESIA
     Route: 042
     Dates: start: 20090406, end: 20090406
  7. NIMBEX [Concomitant]
     Indication: ANAESTHESIA
     Route: 042
     Dates: start: 20090406, end: 20090406
  8. PERFALGAN [Concomitant]
     Indication: DRUG USE FOR UNKNOWN INDICATION
     Route: 042
     Dates: start: 20090406, end: 20090406
  9. CEFOXITIN [Concomitant]
     Indication: DRUG USE FOR UNKNOWN INDICATION
     Route: 065
     Dates: start: 20090406, end: 20090406
  10. KARDEGIC                                /FRA/ [Concomitant]
     Indication: PAIN
     Route: 048
  11. ADALAT [Concomitant]
     Indication: HYPERTENSION
     Route: 048
  12. FENOFIBRATE [Concomitant]
     Indication: HYPERCHOLESTEROLAEMIA
     Route: 048
  13. PENTOFLUX [Concomitant]
     Indication: ARTHRITIS
     Route: 048

REACTIONS (5)
  - ACUTE RESPIRATORY DISTRESS SYNDROME [None]
  - CYTOLYTIC HEPATITIS [None]
  - PNEUMONIA [None]
  - SEPTIC SHOCK [None]
  - URINARY TRACT INFECTION [None]
